FAERS Safety Report 5857234-9 (Version None)
Quarter: 2008Q3

REPORT INFORMATION
  Report Type: 
  Country: None (occurrence: None)
  Receive Date: 20080821
  Receipt Date: 20080807
  Transmission Date: 20090109
  Serious: No
  Sender: FDA-Public Use
  Company Number: 002451

PATIENT
  Sex: Female

DRUGS (3)
  1. PLETAL [Suspect]
     Indication: INTERMITTENT CLAUDICATION
     Dosage: 100 MG, QD , ORAL
     Route: 048
     Dates: start: 20080328, end: 20080404
  2. PLETAL [Suspect]
     Indication: PERIPHERAL ARTERIAL OCCLUSIVE DISEASE
     Dosage: 100 MG, QD , ORAL
     Route: 048
     Dates: start: 20080328, end: 20080404
  3. PANTOPRAZOLE SODIUM [Suspect]
     Dosage: 1 DF, ORAL
     Route: 048

REACTIONS (1)
  - HALLUCINATION [None]
